FAERS Safety Report 6679440-6 (Version None)
Quarter: 2010Q2

REPORT INFORMATION
  Report Type: 
  Country: None (occurrence: None)
  Receive Date: 20100413
  Receipt Date: 20100401
  Transmission Date: 20101027
  Serious: Yes (Hospitalization, Other)
  Sender: FDA-Public Use
  Company Number: US-SANOFI-AVENTIS-2010SA019935

PATIENT
  Age: 81 Year
  Sex: Male

DRUGS (5)
  1. LANTUS [Suspect]
     Indication: TYPE 2 DIABETES MELLITUS
     Route: 058
     Dates: start: 20090101, end: 20100301
  2. LANTUS [Suspect]
     Dosage: DOSE:15 UNIT(S)
     Route: 058
     Dates: end: 20090101
  3. LANTUS [Suspect]
     Dosage: DOSE:25 UNIT(S)
     Route: 058
     Dates: start: 20100301
  4. SOLOSTAR [Suspect]
     Indication: TYPE 2 DIABETES MELLITUS
     Dates: start: 20090101
  5. GLUCOTROL [Concomitant]
     Dosage: WAS ON VERY BRIEFLY; NO LONGER TAKING DRUG.

REACTIONS (6)
  - BALANCE DISORDER [None]
  - BLOOD GLUCOSE DECREASED [None]
  - COLD SWEAT [None]
  - DEHYDRATION [None]
  - HYPOGLYCAEMIA [None]
  - OESOPHAGEAL CARCINOMA [None]
